FAERS Safety Report 22223685 (Version 1)
Quarter: 2023Q2

REPORT INFORMATION
  Report Type: Spontaneous
  Country: GB (occurrence: None)
  Receive Date: 20230417
  Receipt Date: 20230417
  Transmission Date: 20230721
  Serious: Yes (Disabling)
  Sender: FDA-Public Use
  Company Number: None

PATIENT
  Age: 13 Year
  Sex: Female

DRUGS (1)
  1. MONTELUKAST [Suspect]
     Active Substance: MONTELUKAST SODIUM

REACTIONS (7)
  - Anxiety [None]
  - Hallucination [None]
  - Suicidal ideation [None]
  - Paraesthesia [None]
  - Headache [None]
  - Fatigue [None]
  - Self esteem decreased [None]

NARRATIVE: CASE EVENT DATE: 20230328
